FAERS Safety Report 6643286-5 (Version None)
Quarter: 2010Q1

REPORT INFORMATION
  Report Type: 
  Country: None (occurrence: None)
  Receive Date: 20100319
  Receipt Date: 20100310
  Transmission Date: 20100710
  Serious: Yes (Death)
  Sender: FDA-Public Use
  Company Number: GXKR2010TW02881

PATIENT
  Age: 52 Year
  Sex: Male

DRUGS (3)
  1. FUROSEMIDE (NGX) [Suspect]
     Route: 065
  2. TACROLIMUS [Suspect]
     Indication: IMMUNOSUPPRESSION
     Dosage: UNK
     Route: 065
  3. MYCOPHENOLATE MOFETIL [Concomitant]
     Indication: IMMUNOSUPPRESSION
     Dosage: UNK
     Route: 065

REACTIONS (8)
  - BLISTER [None]
  - COAGULOPATHY [None]
  - IGA NEPHROPATHY [None]
  - PEMPHIGOID [None]
  - PLASMAPHERESIS [None]
  - RASH PAPULAR [None]
  - SEPSIS [None]
  - SKIN EROSION [None]
